FAERS Safety Report 10993303 (Version 1)
Quarter: 2015Q2

REPORT INFORMATION
  Report Type: Spontaneous
  Country: US (occurrence: US)
  Receive Date: 20150407
  Receipt Date: 20150407
  Transmission Date: 20150821
  Serious: Yes (Hospitalization, Other)
  Sender: FDA-Public Use
  Company Number: US-AMGEN-USASP2015031229

PATIENT
  Age: 44 Year
  Sex: Female

DRUGS (1)
  1. ENBREL [Suspect]
     Active Substance: ETANERCEPT
     Indication: RHEUMATOID ARTHRITIS
     Dosage: 50 MG, QWK
     Route: 065
     Dates: start: 2000, end: 2011

REACTIONS (22)
  - Synovial rupture [Recovering/Resolving]
  - Pain in extremity [Not Recovered/Not Resolved]
  - Impaired healing [Recovered/Resolved]
  - Injection site pain [Not Recovered/Not Resolved]
  - Feeling abnormal [Recovered/Resolved]
  - Headache [Not Recovered/Not Resolved]
  - Rash macular [Recovered/Resolved]
  - Pain [Not Recovered/Not Resolved]
  - Arthropathy [Recovered/Resolved]
  - Musculoskeletal pain [Not Recovered/Not Resolved]
  - Decreased appetite [Not Recovered/Not Resolved]
  - Condition aggravated [Not Recovered/Not Resolved]
  - Arthralgia [Not Recovered/Not Resolved]
  - Knee arthroplasty [Recovered/Resolved]
  - Type 2 diabetes mellitus [Not Recovered/Not Resolved]
  - Hypertension [Not Recovered/Not Resolved]
  - Meniscus injury [Recovered/Resolved]
  - Injection site injury [Not Recovered/Not Resolved]
  - Abdominal pain upper [Not Recovered/Not Resolved]
  - Skin ulcer [Recovered/Resolved]
  - Inflammatory marker increased [Not Recovered/Not Resolved]
  - Diarrhoea [Not Recovered/Not Resolved]

NARRATIVE: CASE EVENT DATE: 2000
